FAERS Safety Report 14642403 (Version 1)
Quarter: 2018Q1

REPORT INFORMATION
  Report Type: Spontaneous
  Country: ES (occurrence: ES)
  Receive Date: 20180315
  Receipt Date: 20180315
  Transmission Date: 20180509
  Serious: Yes (Death, Hospitalization)
  Sender: FDA-Public Use
  Company Number: ES-SA-2018SA071525

PATIENT
  Age: 23 Year
  Sex: Female

DRUGS (34)
  1. ACYCLOVIR. [Concomitant]
     Active Substance: ACYCLOVIR
     Route: 065
     Dates: start: 20160519
  2. COTRIMOXAZOLE [Concomitant]
     Active Substance: SULFAMETHOXAZOLE\TRIMETHOPRIM
  3. VANCOMYCIN [Concomitant]
     Active Substance: VANCOMYCIN
     Indication: BACTERAEMIA
     Route: 065
     Dates: start: 20160519
  4. VANCOMYCIN [Concomitant]
     Active Substance: VANCOMYCIN
     Indication: BACTERAEMIA
     Route: 065
     Dates: start: 20170228
  5. FLUDARABINE PHOSPHATE. [Suspect]
     Active Substance: FLUDARABINE PHOSPHATE
     Route: 065
     Dates: start: 20160517, end: 20160519
  6. MEROPENEM. [Concomitant]
     Active Substance: MEROPENEM
     Indication: GASTROENTERITIS
     Route: 065
     Dates: start: 20160519
  7. CEFTRIAXONE. [Concomitant]
     Active Substance: CEFTRIAXONE
     Indication: GASTROENTERITIS
  8. CIDOFOVIR. [Concomitant]
     Active Substance: CIDOFOVIR
     Indication: CYTOMEGALOVIRUS INFECTION
  9. GABAPENTIN. [Concomitant]
     Active Substance: GABAPENTIN
     Indication: PARAESTHESIA
  10. ONDANSETRON [Concomitant]
     Active Substance: ONDANSETRON
     Indication: GASTROENTERITIS
  11. CALCIUM ALGINATE [Concomitant]
     Active Substance: CALCIUM ALGINATE
     Indication: DECUBITUS ULCER
     Route: 065
     Dates: start: 201702
  12. MEROPENEM. [Concomitant]
     Active Substance: MEROPENEM
     Indication: GASTROENTERITIS
     Route: 065
     Dates: start: 20160610
  13. MEROPENEM. [Concomitant]
     Active Substance: MEROPENEM
     Indication: BACTERAEMIA
     Route: 065
     Dates: start: 20160519
  14. CARMELLOSE [Concomitant]
     Indication: DECUBITUS ULCER
  15. METAMIZOLE [Concomitant]
     Active Substance: METAMIZOLE
  16. PARACETAMOL [Concomitant]
     Active Substance: ACETAMINOPHEN
     Indication: GASTROENTERITIS
     Route: 065
     Dates: start: 20160519
  17. PARACETAMOL [Concomitant]
     Active Substance: ACETAMINOPHEN
     Indication: PULMONARY OEDEMA
     Route: 065
     Dates: start: 20160519
  18. PARACETAMOL [Concomitant]
     Active Substance: ACETAMINOPHEN
     Indication: PULMONARY OEDEMA
     Route: 065
     Dates: start: 20160630
  19. ALBUMIN [Concomitant]
     Active Substance: ALBUMIN HUMAN
     Route: 065
     Dates: start: 20160605
  20. MEROPENEM. [Concomitant]
     Active Substance: MEROPENEM
     Indication: BACTERAEMIA
     Route: 065
     Dates: start: 20160610
  21. FOSCARNET [Concomitant]
     Active Substance: FOSCARNET
     Indication: PROPHYLAXIS
  22. IRUXOL [Concomitant]
     Indication: DECUBITUS ULCER
     Route: 065
     Dates: start: 201702
  23. GABAPENTIN. [Concomitant]
     Active Substance: GABAPENTIN
     Indication: NEUROPATHY PERIPHERAL
  24. AMIKACIN [Concomitant]
     Active Substance: AMIKACIN
     Indication: GASTROENTERITIS
     Route: 065
     Dates: start: 20160519
  25. ROACTEMRA [Suspect]
     Active Substance: TOCILIZUMAB
     Indication: CYTOKINE RELEASE SYNDROME
     Route: 042
     Dates: start: 20160606
  26. PARACETAMOL [Concomitant]
     Active Substance: ACETAMINOPHEN
     Indication: GASTROENTERITIS
     Route: 065
     Dates: start: 20160630
  27. CYCLOPHOSPHAMIDE. [Suspect]
     Active Substance: CYCLOPHOSPHAMIDE
     Route: 065
     Dates: start: 20160517, end: 20160518
  28. FOSCARNET [Concomitant]
     Active Substance: FOSCARNET
     Indication: CYTOMEGALOVIRUS INFECTION
  29. METHYLPREDNISOLONE. [Concomitant]
     Active Substance: METHYLPREDNISOLONE
  30. MUPIROCIN. [Concomitant]
     Active Substance: MUPIROCIN
     Route: 065
     Dates: start: 20160519
  31. AMIKACIN [Concomitant]
     Active Substance: AMIKACIN
     Indication: URINARY TRACT INFECTION
  32. POSACONAZOLE [Concomitant]
     Active Substance: POSACONAZOLE
     Indication: PROPHYLAXIS
  33. PREDNISONE. [Concomitant]
     Active Substance: PREDNISONE
     Route: 065
     Dates: start: 20160613
  34. PREDNISONE. [Concomitant]
     Active Substance: PREDNISONE
     Route: 065
     Dates: start: 20170322

REACTIONS (10)
  - Acute lymphocytic leukaemia [Fatal]
  - Anaemia [Recovered/Resolved]
  - Bronchial oedema [Recovered/Resolved]
  - Bacteraemia [Recovered/Resolved]
  - Urinary tract infection [Recovered/Resolved]
  - Malnutrition [Recovered/Resolved]
  - Decreased appetite [Not Recovered/Not Resolved]
  - Non-cardiac chest pain [Recovered/Resolved]
  - Adenovirus infection [Recovered/Resolved]
  - Encephalitis viral [Recovered/Resolved]

NARRATIVE: CASE EVENT DATE: 20160622
